FAERS Safety Report 6817145-9 (Version None)
Quarter: 2010Q2

REPORT INFORMATION
  Report Type: 
  Country: None (occurrence: None)
  Receive Date: 20100630
  Receipt Date: 20100616
  Transmission Date: 20101027
  Serious: Yes (Other)
  Sender: FDA-Public Use
  Company Number: 2010AL003632

PATIENT
  Age: 30 Year
  Sex: Female

DRUGS (6)
  1. FLUOXETINE [Suspect]
     Indication: DEPRESSION
     Dosage: 40 MG; PO
     Route: 048
     Dates: start: 20090501
  2. RANITIDINE [Concomitant]
  3. TRAMADOL HCL [Concomitant]
  4. LANSOPRAZOLE [Concomitant]
  5. NORDETTE-28 [Concomitant]
  6. CITALOPRAM [Concomitant]

REACTIONS (2)
  - ABORTION SPONTANEOUS [None]
  - DRUG EXPOSURE DURING PREGNANCY [None]
